FAERS Safety Report 4440738-3 (Version None)
Quarter: 2004Q3

REPORT INFORMATION
  Report Type: 
  Country: None (occurrence: None)
  Receive Date: 20040830
  Receipt Date: 20040813
  Transmission Date: 20050211
  Serious: Yes (Hospitalization)
  Sender: FDA-Public Use
  Company Number: THYM-10267

PATIENT
  Age: 58 Year
  Sex: Male
  Weight: 121 kg

DRUGS (1)
  1. THYMOGLOBULIN [Suspect]
     Indication: RENAL TRANSPLANT
     Dosage: 1.25 MG/KG QD IV
     Route: 042
     Dates: start: 20040728, end: 20040731

REACTIONS (9)
  - ABDOMINAL TENDERNESS [None]
  - BACTERIA URINE [None]
  - BLOOD CREATININE INCREASED [None]
  - EFFUSION [None]
  - PNEUMONIA [None]
  - POST PROCEDURAL COMPLICATION [None]
  - RENAL DISORDER [None]
  - RHINORRHOEA [None]
  - SINUS CONGESTION [None]
